FAERS Safety Report 8505127-0 (Version None)
Quarter: 2012Q3

REPORT INFORMATION
  Report Type: 
  Country: None (occurrence: None)
  Receive Date: 20120712
  Receipt Date: 20120711
  Transmission Date: 20120928
  Serious: Yes (Hospitalization)
  Sender: FDA-Public Use
  Company Number: PHHO2012US010275

PATIENT
  Sex: Male

DRUGS (29)
  1. ADVAIR DISKUS 100/50 [Concomitant]
     Dosage: UNK
     Dates: start: 20111013
  2. NORVASC [Concomitant]
     Dosage: UNK
     Dates: start: 20091019
  3. MULTIPLE VITAMINS [Concomitant]
     Dosage: UNK
     Dates: start: 20070727
  4. ZOLOFT [Concomitant]
     Dosage: UNK
     Dates: start: 20070725
  5. PREDNISONE TAB [Suspect]
     Indication: RENAL TRANSPLANT
     Dosage: 10 MG, UNK
     Dates: start: 20070725
  6. CALCITRIOL [Concomitant]
     Dosage: UNK
     Dates: start: 20081114
  7. CARVEDILOL [Concomitant]
     Dosage: UNK
     Dates: start: 20111026
  8. NIFEDIPINE [Concomitant]
     Dosage: UNK
     Dates: start: 20100331
  9. OMEGA-3 FATTY ACIDS [Concomitant]
     Dosage: UNK
     Dates: start: 20080902
  10. NEORAL [Suspect]
     Indication: RENAL TRANSPLANT
     Dosage: 275 MG, UNK
     Route: 048
     Dates: start: 20060924
  11. FUROSEMIDE [Concomitant]
     Dosage: UNK
     Dates: start: 20070725
  12. IMDUR [Concomitant]
     Dosage: UNK
     Dates: start: 20111007
  13. SEROQUEL [Concomitant]
     Dosage: UNK
     Dates: start: 20070715
  14. POTASSIUM CHLORIDE [Concomitant]
     Dosage: UNK
     Dates: start: 20070919
  15. MYCOPHENOLATE MOFETIL [Suspect]
     Indication: RENAL TRANSPLANT
     Dosage: 500 MG, UNK
     Dates: start: 20070810
  16. ALBUTEROL [Concomitant]
     Dosage: UNK
     Dates: start: 20111013
  17. ATORVASTATIN [Concomitant]
     Dosage: UNK
     Dates: start: 20080306
  18. DRISDOL [Concomitant]
  19. INSULIN [Concomitant]
     Dosage: UNK
     Dates: start: 20070725
  20. LORTAB [Concomitant]
     Dosage: UNK
     Dates: start: 20111004
  21. PERCOCET [Concomitant]
     Dosage: UNK
     Dates: start: 20081210
  22. HYDRALAZINE HYDROCHLORIDE [Concomitant]
     Dosage: UNK
     Dates: start: 20100401
  23. LANTUS [Concomitant]
     Dosage: UNK
     Dates: start: 20070725
  24. ISODRIL [Concomitant]
     Dosage: UNK
     Dates: start: 20111025
  25. ASPIRIN [Concomitant]
     Dosage: UNK
     Dates: start: 20080902
  26. PRAVACHOL [Concomitant]
     Dosage: UNK
     Dates: start: 20080902
  27. PROAIR HFA [Concomitant]
     Dosage: UNK
     Dates: start: 20111013
  28. NEXIUM [Concomitant]
     Dosage: UNK
     Dates: start: 20090520
  29. LYRICA [Concomitant]
     Dosage: UNK
     Dates: start: 20120501

REACTIONS (1)
  - CEREBROVASCULAR ACCIDENT [None]
